FAERS Safety Report 4565244-7 (Version None)
Quarter: 2005Q1

REPORT INFORMATION
  Report Type: 
  Country: None (occurrence: None)
  Receive Date: 20050131
  Receipt Date: 20040709
  Transmission Date: 20050727
  Serious: Yes (Hospitalization)
  Sender: FDA-Public Use
  Company Number: US-ROCHE-374143

PATIENT
  Age: 18 Year
  Sex: Male
  Weight: 49.9 kg

DRUGS (7)
  1. FUZEON [Suspect]
     Route: 058
     Dates: start: 20040518
  2. MEGACE [Concomitant]
     Route: 054
     Dates: start: 20040318, end: 20040515
  3. TESTOSTERONE [Concomitant]
     Dates: start: 20040318
  4. VIREAD [Concomitant]
     Route: 048
     Dates: start: 20040423
  5. REYATAZ [Concomitant]
     Route: 048
     Dates: start: 20040423
  6. COMPAZINE [Concomitant]
     Indication: NAUSEA
     Route: 048
     Dates: start: 20040413
  7. MARINOL [Concomitant]
     Route: 048
     Dates: start: 20040414

REACTIONS (15)
  - BLOOD GLUCOSE ABNORMAL [None]
  - BLOOD GLUCOSE INCREASED [None]
  - DIZZINESS [None]
  - FATIGUE [None]
  - HERPES ZOSTER [None]
  - HYPOTENSION [None]
  - INJECTION SITE NODULE [None]
  - INJECTION SITE PRURITUS [None]
  - NAUSEA [None]
  - NODULE [None]
  - ONYCHOMADESIS [None]
  - PAIN [None]
  - PYREXIA [None]
  - VOMITING [None]
  - WEIGHT DECREASED [None]
